FAERS Safety Report 7110777-2 (Version None)
Quarter: 2010Q4

REPORT INFORMATION
  Report Type: 
  Country: None (occurrence: None)
  Receive Date: 20101118
  Receipt Date: 20101115
  Transmission Date: 20110411
  Serious: Yes (Other)
  Sender: FDA-Public Use
  Company Number: D0069440A

PATIENT
  Sex: Female

DRUGS (1)
  1. AUGMENTIN '125' [Suspect]
     Route: 048

REACTIONS (3)
  - ANGIOEDEMA [None]
  - COELIAC DISEASE [None]
  - THROAT TIGHTNESS [None]
